FAERS Safety Report 5247323-4 (Version None)
Quarter: 2007Q1

REPORT INFORMATION
  Report Type: 
  Country: None (occurrence: None)
  Receive Date: 20070223
  Receipt Date: 20070223
  Transmission Date: 20070707
  Serious: Yes (Death, Life-Threatening, Hospitalization, Other)
  Sender: FDA-Public Use
  Company Number: None

PATIENT
  Age: 70 Year
  Sex: Female
  Weight: 60.6 kg

DRUGS (8)
  1. RITUXIMAB 500 MG GENETECH [Suspect]
     Indication: CHRONIC LYMPHOCYTIC LEUKAEMIA
     Dosage: 600MG -375 MG/M2- EVERY MONTH IV
     Route: 042
  2. TRAZTUZUMAB  440MG  GENETECH [Suspect]
     Indication: BREAST CANCER FEMALE
     Dosage: 360MG -6 MG/KG-  EVERY 3 WEEKS  IV
     Route: 042
  3. CARVEDILOL [Concomitant]
  4. FUROSEMIDE [Concomitant]
  5. SPIRONOLACTONE [Concomitant]
  6. ACYCLOVIR [Concomitant]
  7. NEULASTA [Concomitant]
  8. IMMUNE GLOBULIN INTRAVENOUS (HUMAN) [Concomitant]

REACTIONS (8)
  - ASTHENIA [None]
  - CHRONIC LYMPHOCYTIC LEUKAEMIA [None]
  - DYSPNOEA [None]
  - HYPOTENSION [None]
  - INTERSTITIAL LUNG DISEASE [None]
  - MALIGNANT NEOPLASM PROGRESSION [None]
  - PNEUMONITIS [None]
  - SEPSIS SYNDROME [None]
